FAERS Safety Report 20028478 (Version 2)
Quarter: 2021Q4

REPORT INFORMATION
  Report Type: Spontaneous
  Country: DE (occurrence: DE)
  Receive Date: 20211103
  Receipt Date: 20211108
  Transmission Date: 20220303
  Serious: Yes (Hospitalization)
  Sender: FDA-Public Use
  Company Number: DE-ADRED-06862-01

PATIENT
  Age: 67 Year
  Sex: Female

DRUGS (8)
  1. RAMIPRIL [Suspect]
     Active Substance: RAMIPRIL
     Indication: Product used for unknown indication
     Dosage: 5 MILLIGRAM, QD, 5 MG, 1-0-0-0, TABLETTEN
     Route: 048
  2. HYDROCHLOROTHIAZIDE [Suspect]
     Active Substance: HYDROCHLOROTHIAZIDE
     Indication: Product used for unknown indication
     Dosage: 12.5 MILLIGRAM, QD, 12.5 MG, 1-0-0-0, TABLETTEN
     Route: 048
  3. DULAGLUTIDE [Suspect]
     Active Substance: DULAGLUTIDE
     Indication: Product used for unknown indication
     Dosage: 1.5 MILLIGRAM, 1.5 MG, NACH SCHEMA, FERTIGPEN
     Route: 058
  4. PANTOPRAZOL                        /01263201/ [Concomitant]
     Dosage: 40 MILLIGRAM, QD, 40 MG, 1-0-0-0, TABLETTEN
     Route: 048
  5. APIXABAN [Concomitant]
     Active Substance: APIXABAN
     Dosage: 2.5 MILLIGRAM, BID, 2.5 MG, 1-0-1-0, TABLETTEN
     Route: 048
  6. BETAHISTIN                         /00141802/ [Concomitant]
     Dosage: 24 MILLIGRAM, BID, 24 MG, 1-0-1-0, TABLETTEN
     Route: 048
  7. CITALOPRAM [Concomitant]
     Active Substance: CITALOPRAM HYDROBROMIDE
     Dosage: 30 MILLIGRAM, QD, 30 MG, 1-0-0-0, TABLETTEN
     Route: 048
  8. INSULIN HUMAN [Concomitant]
     Active Substance: INSULIN HUMAN
     Dosage: 1 INTERNATIONAL UNIT, 1 IE, BEDARF, ZYLINDERAMPULLEN
     Route: 058

REACTIONS (6)
  - Infection [Unknown]
  - Blood creatinine increased [Unknown]
  - Pyrexia [Unknown]
  - Abdominal pain lower [Unknown]
  - Chills [Unknown]
  - Dysuria [Unknown]
